FAERS Safety Report 11104495 (Version 2)
Quarter: 2015Q2

REPORT INFORMATION
  Report Type: Spontaneous
  Country: FR (occurrence: FR)
  Receive Date: 20150511
  Receipt Date: 20150522
  Transmission Date: 20150821
  Serious: Yes (Other)
  Sender: FDA-Public Use
  Company Number: FR-PFIZER INC-2015154599

PATIENT
  Age: 82 Year
  Sex: Male

DRUGS (6)
  1. ZOPHREN [Suspect]
     Active Substance: ONDANSETRON
     Indication: LYMPHOMA
     Dosage: ON DAY 1 AND DAY 8
     Route: 048
     Dates: start: 20150126, end: 20150303
  2. SOLU-MEDROL [Suspect]
     Active Substance: METHYLPREDNISOLONE SODIUM SUCCINATE
     Indication: LYMPHOMA
     Dosage: FROM DAY 1 TO DAY 14
     Route: 042
     Dates: start: 20150126, end: 20150310
  3. CYCLOPHOSPHAMIDE. [Suspect]
     Active Substance: CYCLOPHOSPHAMIDE
     Indication: LYMPHOMA
     Dosage: ON DAY 1 AND DAY 8
     Route: 042
     Dates: start: 20150126, end: 20150303
  4. UROMITEXAN [Suspect]
     Active Substance: MESNA
     Indication: LYMPHOMA
     Dosage: ON DAY 1 AND DAY 8
     Route: 042
     Dates: start: 20150126, end: 20150303
  5. VINCRISTINE SULFATE. [Suspect]
     Active Substance: VINCRISTINE SULFATE
     Indication: LYMPHOMA
     Dosage: ON DAY 1 AND DAY 8
     Route: 042
     Dates: start: 20150126, end: 20150303
  6. NATULAN [Suspect]
     Active Substance: PROCARBAZINE HYDROCHLORIDE
     Indication: LYMPHOMA
     Dosage: FROM DAY 2 TO DAY 14
     Route: 048
     Dates: start: 20150127, end: 20150310

REACTIONS (5)
  - Erythema [Unknown]
  - Rash [Unknown]
  - Pyrexia [Unknown]
  - Incorrect route of drug administration [Unknown]
  - Pruritus [Unknown]

NARRATIVE: CASE EVENT DATE: 20150127
